FAERS Safety Report 7608788-3 (Version None)
Quarter: 2011Q3

REPORT INFORMATION
  Report Type: 
  Country: None (occurrence: None)
  Receive Date: 20110713
  Receipt Date: 20110713
  Transmission Date: 20111222
  Serious: Yes (Other)
  Sender: FDA-Public Use
  Company Number: None

PATIENT
  Sex: Female
  Weight: 63.5036 kg

DRUGS (2)
  1. YAZ [Suspect]
     Indication: CONTRACEPTION
     Dosage: AS PACKAGED DAILY ORAL
     Route: 048
     Dates: start: 20100701, end: 20110401
  2. LOESTRIN 24 FE [Suspect]
     Indication: CONTRACEPTION
     Dosage: AS PACKAGED DAILY ORAL
     Route: 048
     Dates: start: 20090301, end: 20100601

REACTIONS (3)
  - MOOD SWINGS [None]
  - EMOTIONAL DISORDER [None]
  - DEPRESSION [None]
